FAERS Safety Report 16143460 (Version 1)
Quarter: 2019Q2

REPORT INFORMATION
  Report Type: Spontaneous
  Country: RS (occurrence: RS)
  Receive Date: 20190401
  Receipt Date: 20190401
  Transmission Date: 20190711
  Serious: Yes (Hospitalization)
  Sender: FDA-Public Use
  Company Number: RS-SA-2019SA084962

PATIENT
  Age: 66 Year
  Sex: Female

DRUGS (8)
  1. TELMIPRESS [Concomitant]
     Indication: HYPERTENSION
     Dosage: 80 MG, BID
     Route: 048
  2. PTU [Concomitant]
     Active Substance: PROPYLTHIOURACIL
     Dosage: 5 MG, BID
     Route: 048
  3. LANTUS SOLOSTAR [Suspect]
     Active Substance: INSULIN GLARGINE
     Indication: DIABETES MELLITUS
     Dosage: 34 IU
     Route: 058
     Dates: start: 201812, end: 20190213
  4. MIDOL [ACETYLSALICYLIC ACID] [Concomitant]
     Indication: ANTICOAGULANT THERAPY
     Dosage: 100 MG, QD
     Route: 048
  5. BISOPROLOL [BISOPROLOL FUMARATE] [Concomitant]
     Active Substance: BISOPROLOL FUMARATE
     Indication: HYPERTENSION
     Dosage: 5 MG, 1+0+1/2
     Route: 048
  6. DIUVER [Concomitant]
     Active Substance: TORSEMIDE
     Indication: HYPERTENSION
     Dosage: 5 MG, QD
     Route: 048
  7. NOVORAPID [Suspect]
     Active Substance: INSULIN ASPART
     Indication: DIABETES MELLITUS
     Dosage: 10 + 12 + 6IU
     Route: 058
     Dates: start: 201812, end: 20190213
  8. AMLODIPIN [AMLODIPINE] [Concomitant]
     Indication: HYPERTENSION
     Dosage: 10 MG, QD
     Route: 048

REACTIONS (3)
  - Erythema [Recovered/Resolved]
  - Dyspnoea [Recovered/Resolved]
  - Rash [Recovered/Resolved]

NARRATIVE: CASE EVENT DATE: 20190213
